FAERS Safety Report 7383415-1 (Version None)
Quarter: 2011Q1

REPORT INFORMATION
  Report Type: 
  Country: None (occurrence: None)
  Receive Date: 20110325
  Receipt Date: 20110325
  Transmission Date: 20110831
  Serious: Yes (Hospitalization)
  Sender: FDA-Public Use
  Company Number: None

PATIENT
  Age: 56 Year
  Sex: Male
  Weight: 78.4 kg

DRUGS (16)
  1. SIMIVASTIN [Concomitant]
  2. ZOFRAN [Concomitant]
  3. MORPHINE [Concomitant]
  4. ATIVAN [Concomitant]
  5. LORTAB [Concomitant]
  6. ACETAMINOPHEN [Concomitant]
  7. IBUPROFEN [Concomitant]
  8. RAD001 [Concomitant]
  9. ELMA CREAM [Concomitant]
  10. COMPAZINE [Concomitant]
  11. AVASTIN [Suspect]
     Dosage: 416 MG IV
     Route: 042
     Dates: start: 20110310
  12. AVASTIN [Suspect]
     Dosage: 416 MG IV
     Route: 042
     Dates: start: 20110214
  13. TAMSULOSIN HCL [Concomitant]
  14. MEGACE [Concomitant]
  15. FOLFOX/AVASTIN [Concomitant]
  16. OMEPRAZOLE [Concomitant]

REACTIONS (2)
  - EMBOLISM ARTERIAL [None]
  - PULMONARY EMBOLISM [None]
